FAERS Safety Report 12136630 (Version 1)
Quarter: 2016Q1

REPORT INFORMATION
  Report Type: Spontaneous
  Country: SE (occurrence: SE)
  Receive Date: 20160302
  Receipt Date: 20160302
  Transmission Date: 20160526
  Serious: Yes (Disabling)
  Sender: FDA-Public Use
  Company Number: SE-AMGEN-SWESP2016023745

PATIENT
  Age: 66 Year
  Sex: Female

DRUGS (15)
  1. BRICANYL [Concomitant]
     Active Substance: TERBUTALINE SULFATE
  2. DOLCONTIN                          /00036302/ [Concomitant]
     Active Substance: MORPHINE
  3. ATROVENT [Concomitant]
     Active Substance: IPRATROPIUM BROMIDE
  4. BEHEPAN                            /00056201/ [Concomitant]
     Active Substance: CYANOCOBALAMIN
  5. FOLACIN                            /00024201/ [Concomitant]
     Active Substance: FOLIC ACID
  6. SAROTEN [Concomitant]
     Active Substance: AMITRIPTYLINE
  7. PROLIA [Suspect]
     Active Substance: DENOSUMAB
     Indication: OSTEOPOROSIS
     Dosage: UNK
     Route: 065
     Dates: start: 201405, end: 20150714
  8. VALTREX [Concomitant]
     Active Substance: VALACYCLOVIR HYDROCHLORIDE
  9. SEREVENT DISKUS [Concomitant]
     Active Substance: SALMETEROL XINAFOATE
  10. NEURONTIN [Concomitant]
     Active Substance: GABAPENTIN
  11. VERSATIS [Concomitant]
     Active Substance: LIDOCAINE
  12. FURIX [Concomitant]
     Active Substance: FUROSEMIDE
  13. PULMICORT TURBUHALER [Concomitant]
     Active Substance: BUDESONIDE
  14. MORPHINE [Concomitant]
     Active Substance: MORPHINE
  15. ACETYLCYSTEINE. [Concomitant]
     Active Substance: ACETYLCYSTEINE

REACTIONS (3)
  - Rectal discharge [Not Recovered/Not Resolved]
  - Onychoclasis [Not Recovered/Not Resolved]
  - Teeth brittle [Not Recovered/Not Resolved]

NARRATIVE: CASE EVENT DATE: 20141101
